FAERS Safety Report 15695936 (Version 1)
Quarter: 2018Q4

REPORT INFORMATION
  Report Type: Spontaneous
  Country: US (occurrence: US)
  Receive Date: 20181206
  Receipt Date: 20181206
  Transmission Date: 20190205
  Serious: Yes (Hospitalization, Other)
  Sender: FDA-Public Use
  Company Number: US-BAYER-2018-225252

PATIENT
  Age: 42 Year
  Sex: Male

DRUGS (2)
  1. ADEMPAS [Suspect]
     Active Substance: RIOCIGUAT
     Dosage: 2.5 MG, TID
     Dates: end: 201811
  2. ADEMPAS [Suspect]
     Active Substance: RIOCIGUAT
     Dosage: UNK
     Dates: start: 2015

REACTIONS (3)
  - Cerebral haemorrhage [Not Recovered/Not Resolved]
  - Metastases to central nervous system [Recovering/Resolving]
  - Lung neoplasm malignant [None]

NARRATIVE: CASE EVENT DATE: 2018
